FAERS Safety Report 6297457-0 (Version None)
Quarter: 2009Q3

REPORT INFORMATION
  Report Type: 
  Country: None (occurrence: None)
  Receive Date: 20090804
  Receipt Date: 20090804
  Transmission Date: 20100115
  Serious: Yes (Other)
  Sender: FDA-Public Use
  Company Number: None

PATIENT
  Age: 57 Year
  Sex: Male
  Weight: 136.0791 kg

DRUGS (11)
  1. ASPIRIN [Suspect]
     Indication: BLOOD CHOLESTEROL
     Dates: start: 20080901
  2. ATENOLOL [Concomitant]
  3. LISINOPRIL [Concomitant]
  4. NIFEDIPINE [Concomitant]
  5. ALLOPURINOL [Concomitant]
  6. AMARYL [Concomitant]
  7. HYDROCHLOROTHIAZIDE [Concomitant]
  8. ATARAX [Concomitant]
  9. VITAMIN E [Concomitant]
  10. ASCORBIC ACID [Concomitant]
  11. METFORMIN [Concomitant]

REACTIONS (1)
  - BLOOD GLUCOSE INCREASED [None]
